FAERS Safety Report 6019887-4 (Version None)
Quarter: 2008Q4

REPORT INFORMATION
  Report Type: 
  Country: None (occurrence: None)
  Receive Date: 20081222
  Receipt Date: 20081211
  Transmission Date: 20090506
  Serious: Yes (Other)
  Sender: FDA-Public Use
  Company Number: SPV1-2008-02756

PATIENT
  Sex: 0

DRUGS (1)
  1. ELAPRASE [Suspect]
     Indication: MUCOPOLYSACCHARIDOSIS II
     Dosage: 23.4 MG, 1X/WEEK, IV DRIP
     Route: 041
     Dates: start: 20061019

REACTIONS (2)
  - CARDIAC FAILURE CONGESTIVE [None]
  - SCOLIOSIS [None]
